FAERS Safety Report 9742653 (Version 3)
Quarter: 2015Q3

REPORT INFORMATION
  Report Type: Spontaneous
  Country: US (occurrence: US)
  Receive Date: 20131210
  Receipt Date: 20150804
  Transmission Date: 20151125
  Serious: No
  Sender: FDA-Public Use
  Company Number: US-GILEAD-2009-0024629

PATIENT
  Age: 56 Year
  Sex: Female
  Weight: 49.89 kg

DRUGS (13)
  1. REVATIO [Concomitant]
     Active Substance: SILDENAFIL CITRATE
  2. COREG [Concomitant]
     Active Substance: CARVEDILOL
  3. PROPYLTHIOURACIL. [Concomitant]
     Active Substance: PROPYLTHIOURACIL
  4. ZANTAC [Concomitant]
     Active Substance: RANITIDINE HYDROCHLORIDE
  5. LETAIRIS [Suspect]
     Active Substance: AMBRISENTAN
     Indication: PULMONARY ARTERIAL HYPERTENSION
     Route: 048
     Dates: start: 20090921
  6. COUMADIN [Concomitant]
     Active Substance: WARFARIN SODIUM
  7. CORDARONE [Concomitant]
     Active Substance: AMIODARONE HYDROCHLORIDE
  8. TYLENOL [Concomitant]
     Active Substance: ACETAMINOPHEN
  9. KLOR-CON M20 [Concomitant]
     Active Substance: POTASSIUM CHLORIDE
  10. ALEVE [Concomitant]
     Active Substance: NAPROXEN SODIUM
  11. BENADRYL [Concomitant]
     Active Substance: DIPHENHYDRAMINE HYDROCHLORIDE
  12. LANOXIN [Concomitant]
     Active Substance: DIGOXIN
  13. DEMADEX [Concomitant]
     Active Substance: TORSEMIDE

REACTIONS (5)
  - Abdominal pain upper [Unknown]
  - Oedema peripheral [Unknown]
  - Chest pain [Unknown]
  - Palpitations [Unknown]
  - Headache [Unknown]
